FAERS Safety Report 21076715 (Version 1)
Quarter: 2022Q3

REPORT INFORMATION
  Report Type: Spontaneous
  Country: US (occurrence: US)
  Receive Date: 20220713
  Receipt Date: 20220713
  Transmission Date: 20221027
  Serious: Yes (Other)
  Sender: FDA-Public Use
  Company Number: US-BRISTOL-MYERS SQUIBB COMPANY-2022-066890

PATIENT
  Age: 65 Year
  Sex: Female

DRUGS (1)
  1. SPRYCEL [Suspect]
     Active Substance: DASATINIB
     Indication: Leukaemia
     Dosage: 100 MILLIGRAM, DAILY
     Route: 048
     Dates: start: 20140621

REACTIONS (2)
  - Abdominal pain upper [Unknown]
  - Cough [Unknown]

NARRATIVE: CASE EVENT DATE: 20210101
